FAERS Safety Report 12185126 (Version 4)
Quarter: 2016Q3

REPORT INFORMATION
  Report Type: Report from Study
  Country: US (occurrence: US)
  Receive Date: 20160316
  Receipt Date: 20160711
  Transmission Date: 20161109
  Serious: Yes (Hospitalization, Other)
  Sender: FDA-Public Use
  Company Number: PHEH2016US006334

PATIENT
  Age: 36 Year
  Sex: Female

DRUGS (1)
  1. ILARIS [Suspect]
     Active Substance: CANAKINUMAB
     Indication: RHEUMATOID ARTHRITIS
     Dosage: 150 MG, EVERY 8 WEEKS
     Route: 058
     Dates: start: 20141006

REACTIONS (7)
  - Pneumonia [Recovered/Resolved]
  - Wheezing [Recovered/Resolved]
  - Pain in jaw [Unknown]
  - Brucellosis [Unknown]
  - Cough [Unknown]
  - Temporomandibular joint syndrome [Unknown]
  - Upper respiratory tract infection [Recovered/Resolved]

NARRATIVE: CASE EVENT DATE: 20160228
